FAERS Safety Report 6265694-7 (Version None)
Quarter: 2009Q3

REPORT INFORMATION
  Report Type: 
  Country: None (occurrence: None)
  Receive Date: 20090713
  Receipt Date: 20090326
  Transmission Date: 20100115
  Serious: No
  Sender: FDA-Public Use
  Company Number: US-BAYER-200916433NA

PATIENT
  Age: 22 Year
  Sex: Female
  Weight: 61 kg

DRUGS (2)
  1. YAZ [Suspect]
     Indication: CONTRACEPTION
     Route: 048
     Dates: start: 20071101
  2. STEROIDS NOS [Concomitant]
     Indication: SCOLIOSIS

REACTIONS (4)
  - CRYING [None]
  - DEPRESSION [None]
  - MOOD SWINGS [None]
  - NO ADVERSE EVENT [None]
